FAERS Safety Report 17412891 (Version 1)
Quarter: 2020Q1

REPORT INFORMATION
  Report Type: Spontaneous
  Country: US (occurrence: US)
  Receive Date: 20200212
  Receipt Date: 20200212
  Transmission Date: 20200409
  Serious: Yes (Other)
  Sender: FDA-Public Use
  Company Number: None

PATIENT
  Sex: Female

DRUGS (13)
  1. PREDNISONE. [Concomitant]
     Active Substance: PREDNISONE
  2. HUMIRA [Suspect]
     Active Substance: ADALIMUMAB
     Indication: RHEUMATOID ARTHRITIS
     Dosage: ?          OTHER FREQUENCY:WEEKLY;?
     Route: 058
     Dates: start: 20190530
  3. FOLIC ACID. [Concomitant]
     Active Substance: FOLIC ACID
  4. GABAPENTIN. [Concomitant]
     Active Substance: GABAPENTIN
  5. LIDOCAINE. [Concomitant]
     Active Substance: LIDOCAINE
  6. ALBUTEROL. [Concomitant]
     Active Substance: ALBUTEROL
  7. DULOXETINE. [Concomitant]
     Active Substance: DULOXETINE
  8. HYDROXYCHLOR [Concomitant]
     Active Substance: HYDROXYCHLOROQUINE
  9. NUCYNTA [Concomitant]
     Active Substance: TAPENTADOL HYDROCHLORIDE
  10. PANTOPRAZOLE [Concomitant]
     Active Substance: PANTOPRAZOLE
  11. AMOX/K CLAV [Concomitant]
     Active Substance: AMOXICILLIN\CLAVULANATE POTASSIUM
  12. ATORVASTATIN [Concomitant]
     Active Substance: ATORVASTATIN
  13. METHYLFOL/ME [Concomitant]

REACTIONS (2)
  - Bronchitis [None]
  - Cerebrovascular accident [None]
